FAERS Safety Report 8098955-X (Version None)
Quarter: 2012Q1

REPORT INFORMATION
  Report Type: 
  Country: None (occurrence: None)
  Receive Date: 20120129
  Receipt Date: 20111004
  Transmission Date: 20120608
  Serious: No
  Sender: FDA-Public Use
  Company Number: US-ABBOTT-11P-163-0860786-00

PATIENT
  Sex: Female

DRUGS (2)
  1. HUMIRA [Suspect]
     Indication: CROHN'S DISEASE
     Dosage: 2 PENS ON DAYS 1, 2 AND 15
     Route: 058
  2. HUMIRA [Suspect]
     Route: 058

REACTIONS (1)
  - HEADACHE [None]
